FAERS Safety Report 7983246-5 (Version None)
Quarter: 2011Q4

REPORT INFORMATION
  Report Type: 
  Country: None (occurrence: None)
  Receive Date: 20111215
  Receipt Date: 20111208
  Transmission Date: 20120403
  Serious: Yes (Hospitalization)
  Sender: FDA-Public Use
  Company Number: PHHO2011DE020573

PATIENT
  Sex: Female
  Weight: 62 kg

DRUGS (4)
  1. AFINITOR [Suspect]
     Indication: LYMPHANGIOLEIOMYOMATOSIS
     Dosage: DOUBLE BLIND
  2. RAD001 [Suspect]
     Indication: LYMPHANGIOLEIOMYOMATOSIS
     Dosage: 10 MG, QD
     Route: 048
     Dates: start: 20111114, end: 20111119
  3. PLACEBO [Suspect]
     Indication: LYMPHANGIOLEIOMYOMATOSIS
     Dosage: DOUBLE BLIND
  4. BLINDED NO TREATMENT RECEIVED [Suspect]
     Indication: LYMPHANGIOLEIOMYOMATOSIS
     Dosage: DOUBLE BLIND

REACTIONS (2)
  - DISEASE PROGRESSION [None]
  - PNEUMONIA [None]
